FAERS Safety Report 4311923-6 (Version None)
Quarter: 2004Q1

REPORT INFORMATION
  Report Type: 
  Country: None (occurrence: None)
  Receive Date: 20040303
  Receipt Date: 20040224
  Transmission Date: 20041129
  Serious: Yes (Hospitalization)
  Sender: FDA-Public Use
  Company Number: 200402506

PATIENT
  Age: 13 Year
  Sex: Male
  Weight: 42 kg

DRUGS (3)
  1. IBUPROFEN [Suspect]
  2. CEFTERAM PIVOXIL [Suspect]
  3. DOMPERIDONE [Suspect]

REACTIONS (18)
  - ALANINE AMINOTRANSFERASE INCREASED [None]
  - ANOREXIA [None]
  - ASPARTATE AMINOTRANSFERASE INCREASED [None]
  - BLOOD CREATINE PHOSPHOKINASE INCREASED [None]
  - DRUG EFFECT DECREASED [None]
  - DYSARTHRIA [None]
  - DYSKINESIA [None]
  - DYSPHAGIA [None]
  - DYSTONIA [None]
  - HEPATIC ENZYME INCREASED [None]
  - INSOMNIA [None]
  - MUSCLE RIGIDITY [None]
  - OPISTHOTONUS [None]
  - PAIN IN EXTREMITY [None]
  - RASH [None]
  - SOMNOLENCE [None]
  - SPASTIC PARALYSIS [None]
  - TALIPES [None]
